FAERS Safety Report 6806824-5 (Version None)
Quarter: 2010Q2

REPORT INFORMATION
  Report Type: 
  Country: None (occurrence: None)
  Receive Date: 20100629
  Receipt Date: 20100618
  Transmission Date: 20101027
  Serious: Yes (Other)
  Sender: FDA-Public Use
  Company Number: US-ELI_LILLY_AND_COMPANY-US201006006052

PATIENT
  Sex: Male

DRUGS (1)
  1. ADCIRCA [Suspect]

REACTIONS (3)
  - BLINDNESS [None]
  - DIPLOPIA [None]
  - VISION BLURRED [None]
